FAERS Safety Report 10509004 (Version 2)
Quarter: 2014Q4

REPORT INFORMATION
  Report Type: Spontaneous
  Country: DE (occurrence: DE)
  Receive Date: 20141009
  Receipt Date: 20141103
  Transmission Date: 20150528
  Serious: Yes (Other)
  Sender: FDA-Public Use
  Company Number: PHHY2014DE128688

PATIENT
  Sex: Female

DRUGS (2)
  1. LEPONEX [Suspect]
     Active Substance: CLOZAPINE
     Dosage: 25 MG, QD
     Route: 048
  2. LEPONEX [Suspect]
     Active Substance: CLOZAPINE
     Indication: PRODUCT USED FOR UNKNOWN INDICATION
     Dosage: 50 MG, QD
     Route: 048

REACTIONS (8)
  - Angina pectoris [Unknown]
  - Dyspnoea [Unknown]
  - Hyperhidrosis [Unknown]
  - VIIth nerve paralysis [Unknown]
  - Chest discomfort [Unknown]
  - Diarrhoea [Unknown]
  - Dry throat [Unknown]
  - Pharyngeal oedema [Unknown]
